FAERS Safety Report 8505956-3 (Version None)
Quarter: 2012Q3

REPORT INFORMATION
  Report Type: 
  Country: None (occurrence: None)
  Receive Date: 20120712
  Receipt Date: 20120711
  Transmission Date: 20120928
  Serious: Yes (Other)
  Sender: FDA-Public Use
  Company Number: US-GLAXOSMITHKLINE-A0978901A

PATIENT
  Sex: Male

DRUGS (2)
  1. LISINOPRIL [Concomitant]
  2. VENTOLIN [Suspect]
     Indication: BRONCHOSPASM
     Route: 055

REACTIONS (3)
  - ASTHMA [None]
  - OXYGEN SATURATION DECREASED [None]
  - PRODUCT QUALITY ISSUE [None]
